FAERS Safety Report 23935476 (Version 1)
Quarter: 2024Q2

REPORT INFORMATION
  Report Type: Spontaneous
  Country: US (occurrence: US)
  Receive Date: 20240604
  Receipt Date: 20240604
  Transmission Date: 20240716
  Serious: No
  Sender: FDA-Public Use
  Company Number: US-HIKMA PHARMACEUTICALS USA INC.-US-H14001-24-00367

PATIENT
  Sex: Female

DRUGS (1)
  1. DOXYCYCLINE [Suspect]
     Active Substance: DOXYCYCLINE\DOXYCYCLINE HYCLATE
     Indication: Product used for unknown indication
     Dosage: 1 CAPSULE BY MOUTH TWICE A DAY FOR 14 DAYS.
     Route: 048

REACTIONS (6)
  - Chest pain [Unknown]
  - Oesophageal pain [Unknown]
  - Pain [Unknown]
  - Discomfort [Unknown]
  - Irregular breathing [Unknown]
  - Gait disturbance [Unknown]
